FAERS Safety Report 7735422-4 (Version None)
Quarter: 2011Q3

REPORT INFORMATION
  Report Type: 
  Country: None (occurrence: None)
  Receive Date: 20110907
  Receipt Date: 20110906
  Transmission Date: 20111222
  Serious: Yes (Other)
  Sender: FDA-Public Use
  Company Number: BR-PFIZER INC-2009295276

PATIENT
  Age: 45 Year
  Sex: Male
  Weight: 79.6 kg

DRUGS (60)
  1. VORICONAZOLE [Suspect]
     Dosage: 300 MG, SINGLE
     Route: 042
     Dates: start: 20091108, end: 20091108
  2. NYSTATIN [Concomitant]
     Dosage: UNK
     Route: 048
     Dates: start: 20091014, end: 20091101
  3. FUROSEMIDE [Concomitant]
     Dosage: UNK
     Route: 042
     Dates: start: 20091105, end: 20091107
  4. ACYCLOVIR [Concomitant]
     Dosage: UNK
     Route: 042
     Dates: start: 20091027, end: 20091101
  5. METRONIDAZOLE [Concomitant]
     Dosage: UNK
     Route: 048
     Dates: start: 20091030, end: 20091103
  6. MAGNESIUM W/POTASSIUM [Concomitant]
     Dosage: UNK
     Route: 042
     Dates: start: 20091101, end: 20091103
  7. POTASSIUM CHLORIDE [Concomitant]
     Dosage: UNK
     Route: 048
     Dates: start: 20091102, end: 20091104
  8. LOSARTAN [Concomitant]
     Dosage: UNK
     Route: 048
     Dates: start: 20091107, end: 20091130
  9. CLONIDINE [Concomitant]
     Dosage: UNK
     Route: 048
     Dates: start: 20091107
  10. HEXAMIDINE [Concomitant]
     Dosage: UNK
     Dates: start: 20091027, end: 20091101
  11. TRAMADOL [Concomitant]
     Dosage: UNK
     Route: 048
     Dates: start: 20091008, end: 20091101
  12. BENZYDAMINE [Concomitant]
     Dosage: UNK
     Route: 061
     Dates: start: 20091014, end: 20091104
  13. HYDROCORTISONE [Concomitant]
     Dosage: UNK
     Route: 042
     Dates: start: 20091019, end: 20091026
  14. GLUCOSE/ MAGNESIUM CL. HEXAHYDRATE/POTASSIUM CL./SODIUM CL. [Concomitant]
     Dosage: UNK
     Route: 042
     Dates: start: 20091019, end: 20091031
  15. HYOSCINE [Concomitant]
     Dosage: UNK
     Route: 042
     Dates: start: 20091101
  16. MAGNESIUM W/POTASSIUM [Concomitant]
     Dosage: UNK
     Route: 042
     Dates: start: 20091031, end: 20091101
  17. ALBUTEROL SULFATE AND IPRATROPIUM BROMIDE [Concomitant]
     Dosage: UNK
     Route: 045
     Dates: start: 20091109
  18. OMEPRAZOLE [Concomitant]
     Dosage: UNK
     Route: 048
     Dates: start: 20091008
  19. FUROSEMIDE [Concomitant]
     Dosage: UNK
     Route: 042
     Dates: start: 20091028, end: 20091031
  20. FUROSEMIDE [Concomitant]
     Dosage: UNK
     Route: 042
     Dates: start: 20091107
  21. IMIPENEM [Concomitant]
     Dosage: UNK
     Route: 042
     Dates: start: 20091027, end: 20091105
  22. ACYCLOVIR [Concomitant]
     Dosage: UNK
     Route: 042
     Dates: start: 20091026, end: 20091027
  23. ACYCLOVIR [Concomitant]
     Dosage: UNK
     Route: 048
     Dates: start: 20091101
  24. POTASSIUM CHLORIDE [Concomitant]
     Dosage: UNK
     Route: 042
     Dates: start: 20091106
  25. DIPYRONE TAB [Concomitant]
     Dosage: UNK
     Route: 042
     Dates: start: 20091022
  26. DEXPANTHENOL [Concomitant]
     Dosage: UNK
     Route: 061
     Dates: start: 20091014, end: 20091104
  27. DEXCHLORPHENIRAMINE [Concomitant]
     Dosage: UNK
     Route: 048
     Dates: start: 20091026, end: 20091101
  28. VANCOMYCIN [Concomitant]
     Dosage: UNK
     Route: 042
     Dates: start: 20091027, end: 20091101
  29. FILGRASTIM [Concomitant]
     Dosage: UNK
     Route: 042
     Dates: start: 20091027, end: 20091101
  30. VORICONAZOLE [Suspect]
     Dosage: 300 MG, 2X/DAY
     Route: 042
     Dates: start: 20091105, end: 20091107
  31. DIPYRONE TAB [Concomitant]
     Dosage: UNK
     Route: 048
     Dates: start: 20091008, end: 20091026
  32. METOCLOPRAMIDE [Concomitant]
     Dosage: UNK
     Dates: start: 20091008, end: 20091031
  33. MINERAL OIL [Concomitant]
     Dosage: UNK
     Route: 048
     Dates: start: 20091019, end: 20091028
  34. LOPERAMIDE [Concomitant]
     Dosage: UNK
     Route: 048
     Dates: start: 20091026, end: 20091031
  35. SULFAMETHOXAZOLE AND TRIMETHOPRIM [Concomitant]
     Dosage: UNK
     Route: 048
     Dates: start: 20091022
  36. AMPHOTERICIN B [Concomitant]
     Dosage: UNK
     Route: 042
     Dates: start: 20091031, end: 20091031
  37. PARACETAMOL [Concomitant]
     Dosage: UNK
     Route: 048
     Dates: start: 20091031, end: 20091101
  38. FLUNITRAZEPAM [Concomitant]
     Dosage: UNK
     Route: 048
     Dates: start: 20091105
  39. PROPRANOLOL [Concomitant]
     Dosage: UNK
     Route: 048
     Dates: start: 20091105, end: 20091130
  40. MAGNESIUM SULFATE [Concomitant]
     Dosage: UNK
     Route: 042
     Dates: start: 20091107
  41. ANIDULAFUNGIN [Suspect]
     Indication: ASPERGILLOSIS
     Dosage: 100 MG, 1X/DAY
     Route: 042
     Dates: start: 20091103, end: 20091107
  42. ONDANSETRON [Concomitant]
     Dosage: UNK
     Route: 042
     Dates: start: 20091104
  43. HYDROCORTISONE [Concomitant]
     Dosage: UNK
     Route: 042
     Dates: start: 20091027, end: 20091101
  44. ACYCLOVIR [Concomitant]
     Dosage: UNK
     Route: 048
     Dates: start: 20091022, end: 20091026
  45. PIPERACILLIN AND TAZOBACTAM [Concomitant]
     Dosage: UNK
     Route: 042
     Dates: start: 20091022, end: 20091026
  46. PIPERACILLIN AND TAZOBACTAM [Concomitant]
     Dosage: UNK
     Route: 042
     Dates: start: 20091026, end: 20091028
  47. AMPHOTERICINE B, LIPOSOME [Concomitant]
     Dosage: UNK
     Route: 042
     Dates: start: 20091031, end: 20091101
  48. LOPERAMIDE [Concomitant]
     Dosage: UNK
     Route: 048
     Dates: start: 20091019, end: 20091027
  49. HYOSCINE [Concomitant]
     Dosage: UNK
     Route: 042
     Dates: start: 20091027, end: 20091101
  50. VORICONAZOLE [Suspect]
     Indication: ASPERGILLOSIS
     Dosage: 475 MG, 1X/DAY
     Route: 042
     Dates: start: 20091103, end: 20091104
  51. VORICONAZOLE [Suspect]
     Dosage: 320 MG, SINGLE
     Route: 042
     Dates: start: 20091104, end: 20091104
  52. METOCLOPRAMIDE [Concomitant]
     Dosage: UNK
     Route: 042
     Dates: start: 20091104
  53. ZOLPIDEM [Concomitant]
     Dosage: UNK
     Route: 048
     Dates: start: 20091008, end: 20091104
  54. ONDANSETRON [Concomitant]
     Dosage: UNK
     Route: 042
     Dates: start: 20091014
  55. DIMENHYDRINATE - SLOW RELEASE ^RATIOPHARM^ [Concomitant]
     Dosage: UNK
     Route: 042
     Dates: start: 20091014, end: 20091101
  56. FUROSEMIDE [Concomitant]
     Dosage: UNK
     Route: 042
     Dates: start: 20091104, end: 20091104
  57. TETRACAINE [Concomitant]
     Dosage: UNK
     Route: 042
     Dates: start: 20091027, end: 20091101
  58. FLUCONAZOLE [Concomitant]
     Dosage: UNK
     Route: 042
     Dates: start: 20091029, end: 20091031
  59. FLUNITRAZEPAM [Concomitant]
     Dosage: UNK
     Route: 048
     Dates: start: 20091104, end: 20091105
  60. ENALAPRIL [Concomitant]
     Dosage: UNK
     Route: 048
     Dates: start: 20091112, end: 20091130

REACTIONS (1)
  - NEPHRITIC SYNDROME [None]
